FAERS Safety Report 10241698 (Version 2)
Quarter: 2014Q3

REPORT INFORMATION
  Report Type: Spontaneous
  Country: US (occurrence: None)
  Receive Date: 20140613
  Receipt Date: 20140821
  Transmission Date: 20150326
  Serious: Yes (Death, Hospitalization, Other)
  Sender: FDA-Public Use
  Company Number: UNT-2014-001641

PATIENT
  Age: 49 Year
  Sex: Female
  Weight: 48.5 kg

DRUGS (3)
  1. REMODULIN [Suspect]
     Active Substance: TREPROSTINIL
     Indication: PULMONARY ARTERIAL HYPERTENSION
     Route: 041
     Dates: start: 20121026
  2. TRACLEER [Concomitant]
     Active Substance: BOSENTAN\BOSENTAN MONOHYDRATE
  3. REVATIO (SILDENAFIL CITRATE) [Concomitant]

REACTIONS (3)
  - Dyspnoea [None]
  - Cough [None]
  - Pulmonary hypertension [None]

NARRATIVE: CASE EVENT DATE: 2014
